FAERS Safety Report 9809573 (Version 2)
Quarter: 2014Q1

REPORT INFORMATION
  Report Type: Spontaneous
  Country: US (occurrence: US)
  Receive Date: 20140110
  Receipt Date: 20140110
  Transmission Date: 20141002
  Serious: Yes (Life-Threatening, Hospitalization)
  Sender: FDA-Public Use
  Company Number: US-SANOFI-AVENTIS-2012SA032464

PATIENT
  Age: 74 Year
  Sex: Male
  Weight: 96 kg

DRUGS (10)
  1. PLAVIX [Suspect]
     Indication: ACUTE CORONARY SYNDROME
     Route: 048
     Dates: start: 20120312, end: 20120312
  2. PLAVIX [Suspect]
     Indication: ACUTE CORONARY SYNDROME
     Route: 048
     Dates: start: 20120317, end: 20120318
  3. PLAVIX [Suspect]
     Indication: ACUTE CORONARY SYNDROME
     Route: 048
     Dates: start: 20120320
  4. ASPIRIN [Suspect]
     Indication: ACUTE CORONARY SYNDROME
     Route: 048
     Dates: start: 20120312, end: 20120312
  5. ASPIRIN [Suspect]
     Indication: ACUTE CORONARY SYNDROME
     Route: 048
     Dates: start: 20120317, end: 20120320
  6. ASPIRIN [Suspect]
     Indication: ACUTE CORONARY SYNDROME
     Route: 048
     Dates: start: 20120322
  7. OTAMIXABAN [Suspect]
     Indication: ACUTE CORONARY SYNDROME
     Route: 042
     Dates: start: 20120312, end: 20120312
  8. HEPARIN [Concomitant]
     Dosage: 1192 IU/H.
     Route: 041
     Dates: start: 20120312, end: 20120312
  9. HEPARIN [Concomitant]
     Dosage: DOSE:4000 UNIT(S)
     Route: 040
     Dates: start: 20120312, end: 20120312
  10. LOVENOX [Concomitant]
     Route: 058
     Dates: start: 20120311, end: 20120311

REACTIONS (1)
  - Duodenal ulcer haemorrhage [Recovered/Resolved]
